FAERS Safety Report 4281139-0 (Version None)
Quarter: 2004Q1

REPORT INFORMATION
  Report Type: 
  Country: None (occurrence: None)
  Receive Date: 20040108
  Receipt Date: 20030314
  Transmission Date: 20041129
  Serious: Yes (Other)
  Sender: FDA-Public Use
  Company Number: WAES 0303USA01521

PATIENT
  Age: 78 Year
  Sex: Female

DRUGS (1)
  1. TIMOPTIC IN OCUDOSE [Suspect]
     Indication: GLAUCOMA
     Dosage: 2 DROPS/DAILY/OPHT
     Route: 047

REACTIONS (3)
  - ERYTHEMA [None]
  - EYE IRRITATION [None]
  - EYE PRURITUS [None]
